FAERS Safety Report 6167743-3 (Version None)
Quarter: 2009Q2

REPORT INFORMATION
  Report Type: 
  Country: None (occurrence: None)
  Receive Date: 20090427
  Receipt Date: 20090420
  Transmission Date: 20091009
  Serious: Yes (Death, Life-Threatening)
  Sender: FDA-Public Use
  Company Number: JP-BAYER-200910712BYL

PATIENT
  Age: 83 Year
  Sex: Female
  Weight: 33 kg

DRUGS (3)
  1. CIPROXAN-I.V. [Suspect]
     Indication: PERITONITIS
     Dosage: TOTAL DAILY DOSE: 300 MG  UNIT DOSE: 300 MG
     Route: 041
     Dates: start: 20081203, end: 20081205
  2. SULPERAZON [Concomitant]
     Dosage: TOTAL DAILY DOSE: 1 G
     Route: 041
     Dates: start: 20081205, end: 20081208
  3. FINIBAX [Concomitant]
     Dosage: TOTAL DAILY DOSE: 0.25 G
     Route: 041
     Dates: start: 20081209, end: 20081212

REACTIONS (2)
  - LIVER DISORDER [None]
  - VENOUS THROMBOSIS LIMB [None]
